FAERS Safety Report 10147149 (Version 1)
Quarter: 2014Q2

REPORT INFORMATION
  Report Type: Other
  Country: FR (occurrence: FR)
  Receive Date: 20140501
  Receipt Date: 20140501
  Transmission Date: 20141212
  Serious: Yes (Hospitalization, Other)
  Sender: FDA-Public Use
  Company Number: FR-MPIJNJ-2014JNJ003132

PATIENT
  Sex: 0

DRUGS (14)
  1. VELCADE [Suspect]
     Indication: PLASMA CELL MYELOMA
     Dosage: 3.5 MG, UNK
     Route: 058
     Dates: start: 201312, end: 20140114
  2. ENDOXAN [Suspect]
     Indication: PLASMA CELL MYELOMA
     Dosage: UNK
     Route: 042
     Dates: start: 201312, end: 20140114
  3. DEXAMETHASONE [Suspect]
     Dosage: UNK
     Route: 065
     Dates: start: 201312, end: 20140114
  4. HEPARIN [Suspect]
     Dosage: 0.2 ML, BID
     Route: 058
  5. FLUCONAZOLE [Suspect]
     Dosage: 50 MG, TID
     Route: 048
     Dates: start: 20140117
  6. FUROSEMIDE [Suspect]
     Indication: PRODUCT USED FOR UNKNOWN INDICATION
     Dosage: 500 MG, UNK
     Route: 065
  7. ALFACALCIDOL [Concomitant]
     Dosage: 0.5 MG, QD
     Route: 048
  8. ZELITREX [Concomitant]
     Dosage: 250 MG, QD
  9. ARANESP [Concomitant]
     Dosage: 80 PG, 1/WEEK
  10. BACTRIM [Concomitant]
     Dosage: UNK, Q3WEEKS
  11. DIFFU K [Concomitant]
     Dosage: UNK, TID
  12. PARACETAMOL [Concomitant]
     Dosage: 1 G, QID
  13. VITAMINE B6 [Concomitant]
     Dosage: UNK, BID
     Dates: start: 20140117
  14. VANCOMYCINE [Concomitant]
     Dosage: UNK
     Route: 042
     Dates: start: 20140131, end: 20140207

REACTIONS (1)
  - Febrile bone marrow aplasia [Recovered/Resolved]
